FAERS Safety Report 6358086-3 (Version None)
Quarter: 2009Q3

REPORT INFORMATION
  Report Type: 
  Country: None (occurrence: None)
  Receive Date: 20090916
  Receipt Date: 20090909
  Transmission Date: 20100115
  Serious: Yes (Death)
  Sender: FDA-Public Use
  Company Number: B0593402A

PATIENT
  Sex: Male

DRUGS (2)
  1. FLONASE [Suspect]
     Indication: SNEEZING
     Dosage: 4PUFF PER DAY
     Route: 045
     Dates: start: 20090714, end: 20090721
  2. SERETIDE [Concomitant]
     Route: 065

REACTIONS (2)
  - DEATH [None]
  - SNEEZING [None]
